FAERS Safety Report 13547052 (Version 1)
Quarter: 2017Q2

REPORT INFORMATION
  Report Type: Report from Study
  Country: US (occurrence: US)
  Receive Date: 20170515
  Receipt Date: 20170515
  Transmission Date: 20170830
  Serious: Yes (Other)
  Sender: FDA-Public Use
  Company Number: US-GILEAD-2017-0270447

PATIENT
  Age: 17 Year
  Sex: Female

DRUGS (36)
  1. PULMOZYME [Concomitant]
     Active Substance: DORNASE ALFA
     Route: 055
  2. SALINE                             /00075401/ [Concomitant]
     Active Substance: SODIUM CHLORIDE
     Route: 045
  3. XOPENEX [Concomitant]
     Active Substance: LEVALBUTEROL HYDROCHLORIDE
     Route: 055
  4. MUCOMYST [Concomitant]
     Active Substance: ACETYLCYSTEINE
     Indication: PULMONARY CONGESTION
  5. DIASTAT                            /00017001/ [Concomitant]
  6. PEDIALYTE                          /02025801/ [Concomitant]
  7. NYSTATIN. [Concomitant]
     Active Substance: NYSTATIN
     Dosage: UNK, PRN
  8. KEPPRA [Concomitant]
     Active Substance: LEVETIRACETAM
  9. ACIDOPHILUS [Concomitant]
     Active Substance: LACTOBACILLUS ACIDOPHILUS
  10. BENADRYL                           /00945501/ [Concomitant]
     Active Substance: ACRIVASTINE
  11. PATANASE [Concomitant]
     Active Substance: OLOPATADINE HYDROCHLORIDE
     Route: 045
  12. AZITHROMYCIN ANHYDROUS. [Concomitant]
     Active Substance: AZITHROMYCIN ANHYDROUS
  13. CLONAZEPAM. [Concomitant]
     Active Substance: CLONAZEPAM
  14. MELATONIN [Concomitant]
     Active Substance: MELATONIN
  15. FLU VACCINE VII [Concomitant]
     Active Substance: INFLUENZA VIRUS VACCINE
     Dosage: UNK
     Dates: start: 20161007
  16. AZTREONAM LYSINE [Suspect]
     Active Substance: AZTREONAM LYSINE
     Indication: CYSTIC FIBROSIS
     Dosage: 75 MG, TID
     Route: 055
     Dates: start: 20170202
  17. HYPERSAL [Concomitant]
     Route: 055
  18. TOBI [Concomitant]
     Active Substance: TOBRAMYCIN
  19. MVI                                /07504101/ [Concomitant]
  20. SODIUM BICARBONATE. [Concomitant]
     Active Substance: SODIUM BICARBONATE
     Dosage: UNK, PRN
  21. PULMICORT TURBUHALER [Concomitant]
     Active Substance: BUDESONIDE
     Route: 055
  22. FLUTICASONE. [Concomitant]
     Active Substance: FLUTICASONE
     Route: 045
  23. BENEFIBER                          /00677201/ [Concomitant]
     Active Substance: ICODEXTRIN
  24. SYNTHROID [Concomitant]
     Active Substance: LEVOTHYROXINE SODIUM
  25. BACTRIM [Concomitant]
     Active Substance: SULFAMETHOXAZOLE\TRIMETHOPRIM
  26. MOTRIN [Concomitant]
     Active Substance: IBUPROFEN
     Dosage: UNK, PRN
  27. BENEPROTEIN [Concomitant]
     Active Substance: DIETARY SUPPLEMENT
  28. OXYGEN. [Concomitant]
     Active Substance: OXYGEN
     Indication: OXYGEN SATURATION DECREASED
     Route: 045
  29. BACTROBAN [Concomitant]
     Active Substance: MUPIROCIN\MUPIROCIN CALCIUM
     Dosage: UNK, PRN
  30. TYLENOL [Concomitant]
     Active Substance: ACETAMINOPHEN
     Dosage: UNK, PRN
  31. IPRATROPIUM [Concomitant]
     Active Substance: IPRATROPIUM
     Route: 055
  32. DEPAKENE [Concomitant]
     Active Substance: VALPROIC ACID
  33. VIMPAT [Concomitant]
     Active Substance: LACOSAMIDE
  34. MIRALAX [Concomitant]
     Active Substance: POLYETHYLENE GLYCOL 3350
  35. CIPRO [Concomitant]
     Active Substance: CIPROFLOXACIN HYDROCHLORIDE
     Dosage: UNK
     Dates: end: 20170501
  36. LOTRISONE [Concomitant]
     Active Substance: BETAMETHASONE DIPROPIONATE\CLOTRIMAZOLE
     Dosage: UNK, PRN

REACTIONS (2)
  - Pneumonia [Not Recovered/Not Resolved]
  - Respiratory tract infection [Not Recovered/Not Resolved]

NARRATIVE: CASE EVENT DATE: 20170410
